FAERS Safety Report 24060083 (Version 1)
Quarter: 2024Q3

REPORT INFORMATION
  Report Type: Spontaneous
  Country: CN (occurrence: CN)
  Receive Date: 20240708
  Receipt Date: 20240708
  Transmission Date: 20241017
  Serious: Yes (Other)
  Sender: Teyro Labs
  Company Number: CN-TEYRO-2024-TY-000267

PATIENT
  Age: 62 Year
  Sex: Male

DRUGS (5)
  1. CAPECITABINE [Suspect]
     Active Substance: CAPECITABINE
     Indication: Squamous cell carcinoma of the hypopharynx
     Dosage: 3 CYCLES, 800 MG/M2 BID D1-14 VIA ORAL USE
     Route: 048
  2. CAPECITABINE [Suspect]
     Active Substance: CAPECITABINE
     Dosage: Q21D
     Route: 065
  3. CAMRELIZUMAB [Suspect]
     Active Substance: CAMRELIZUMAB
     Indication: Squamous cell carcinoma of the hypopharynx
     Dosage: 3 CYCLES, 200 MG D1 VIA INTRAVENOUS
     Route: 042
  4. DOCETAXEL [Suspect]
     Active Substance: DOCETAXEL\DOCETAXEL ANHYDROUS
     Indication: Squamous cell carcinoma of the hypopharynx
     Dosage: 3 CYCLES, 75 MG/M2 D1 VIA INTRAVENOUS
     Route: 042
  5. CISPLATIN [Suspect]
     Active Substance: CISPLATIN
     Indication: Squamous cell carcinoma of the hypopharynx
     Dosage: 3 CYCLES, 25 MG/M2 D1-3 VIA INTRAVENOUS
     Route: 042

REACTIONS (13)
  - Hypothyroidism [Unknown]
  - Leukopenia [Unknown]
  - Thrombocytopenia [Unknown]
  - Reactive capillary endothelial proliferation [Unknown]
  - Adverse event [Unknown]
  - Dysgeusia [Unknown]
  - Pharyngeal inflammation [Unknown]
  - Anaemia [Unknown]
  - Dysphagia [Unknown]
  - Dry mouth [Unknown]
  - Alopecia [Unknown]
  - Fatigue [Unknown]
  - Off label use [Unknown]
